FAERS Safety Report 14754036 (Version 1)
Quarter: 2018Q2

REPORT INFORMATION
  Report Type: Other
  Country: JP (occurrence: JP)
  Receive Date: 20180412
  Receipt Date: 20180412
  Transmission Date: 20180711
  Serious: Yes (Death, Disabling)
  Sender: FDA-Public Use
  Company Number: JP-GE HEALTHCARE-OMPQ-PR-1503S-0296

PATIENT

DRUGS (6)
  1. BFLUID [Concomitant]
     Active Substance: AMINO ACIDS\DEXTROSE\ELECTROLYTES NOS\VITAMINS
     Dosage: UNK
     Dates: start: 20150127, end: 20150127
  2. FLUITRAN [Concomitant]
     Active Substance: TRICHLORMETHIAZIDE
  3. POTACOL R [Concomitant]
     Dosage: UNK
     Dates: start: 20150127, end: 20150127
  4. SEISHOKU [Concomitant]
     Active Substance: SODIUM CHLORIDE
     Dosage: UNK
  5. OMNIPAQUE [Suspect]
     Active Substance: IOHEXOL
     Indication: HEPATIC FUNCTION ABNORMAL
     Dosage: UNK UNK, SINGLE
     Route: 042
     Dates: start: 20150127, end: 20150127
  6. PRIMPERAN [Concomitant]
     Active Substance: METOCLOPRAMIDE HYDROCHLORIDE

REACTIONS (2)
  - Cardiac failure [Fatal]
  - Toxic epidermal necrolysis [Not Recovered/Not Resolved]

NARRATIVE: CASE EVENT DATE: 20150127
